FAERS Safety Report 9019881 (Version 1)
Quarter: 2013Q1

REPORT INFORMATION
  Report Type: Spontaneous
  Country: BR (occurrence: BR)
  Receive Date: 20130118
  Receipt Date: 20130118
  Transmission Date: 20140127
  Serious: Yes (Other)
  Sender: FDA-Public Use
  Company Number: BR-AMGEN-BRASP2013003630

PATIENT
  Age: 51 Year
  Sex: Female
  Weight: 62 kg

DRUGS (2)
  1. ENBREL [Suspect]
     Indication: RHEUMATOID ARTHRITIS
     Dosage: 50 MG, ONCE WEEKLY
     Route: 058
     Dates: start: 201207
  2. METHOTREXATE [Concomitant]
     Dosage: 17.5 MG, ONCE WEEKLY
     Dates: start: 2011

REACTIONS (4)
  - Haemorrhage [Unknown]
  - Pain [Unknown]
  - Wrong technique in drug usage process [Unknown]
  - Injection site pain [Unknown]
